FAERS Safety Report 7673824-5 (Version None)
Quarter: 2011Q3

REPORT INFORMATION
  Report Type: 
  Country: None (occurrence: None)
  Receive Date: 20110810
  Receipt Date: 20110801
  Transmission Date: 20111222
  Serious: Yes (Other)
  Sender: FDA-Public Use
  Company Number: PHHY2011US49444

PATIENT
  Sex: Male
  Weight: 68.04 kg

DRUGS (2)
  1. EXJADE [Suspect]
     Indication: OROPHARYNGEAL CANCER STAGE UNSPECIFIED
     Dosage: 1500 MG, DAILY
     Route: 048
     Dates: start: 20090901
  2. EXJADE [Suspect]
     Indication: IRON OVERLOAD

REACTIONS (1)
  - NEPHROLITHIASIS [None]
